FAERS Safety Report 9148258 (Version 1)
Quarter: 2013Q1

REPORT INFORMATION
  Report Type: Spontaneous
  Country: US (occurrence: None)
  Receive Date: 20130228
  Receipt Date: 20130228
  Transmission Date: 20140127
  Serious: Yes (Other)
  Sender: FDA-Public Use
  Company Number: None

PATIENT
  Age: 82 Year
  Sex: Female
  Weight: 59.42 kg

DRUGS (2)
  1. ETODOLAC [Suspect]
     Indication: BURSITIS
     Dates: start: 2010, end: 2012
  2. ETODOLAC [Suspect]
     Indication: ARTHRITIS
     Dates: start: 2010, end: 2012

REACTIONS (8)
  - Weight increased [None]
  - Local swelling [None]
  - Joint swelling [None]
  - Abdominal distension [None]
  - Flatulence [None]
  - Rash [None]
  - Constipation [None]
  - Fatigue [None]
